FAERS Safety Report 5581450-7 (Version None)
Quarter: 2008Q1

REPORT INFORMATION
  Report Type: 
  Country: None (occurrence: None)
  Receive Date: 20080104
  Receipt Date: 20071221
  Transmission Date: 20080703
  Serious: Yes (Other)
  Sender: FDA-Public Use
  Company Number: JP-BAYER-200716018GDS

PATIENT
  Age: 70 Year
  Sex: Male
  Weight: 52 kg

DRUGS (6)
  1. ASPIRIN [Suspect]
     Indication: ARTERIOSCLEROSIS OBLITERANS
     Route: 048
     Dates: start: 20040129
  2. TENORMIN [Suspect]
     Indication: DRUG USE FOR UNKNOWN INDICATION
     Route: 048
     Dates: start: 20040129
  3. ENALAPRIL MALEATE [Suspect]
     Indication: DRUG USE FOR UNKNOWN INDICATION
     Route: 048
     Dates: start: 20060129
  4. TAMIFLU [Concomitant]
     Indication: INFLUENZA
     Route: 065
  5. NITRODERM [Concomitant]
     Indication: DRUG USE FOR UNKNOWN INDICATION
     Route: 062
     Dates: start: 20040129
  6. OREN-GEDOKU-TO [Concomitant]
     Indication: DRUG USE FOR UNKNOWN INDICATION
     Route: 048
     Dates: start: 20060129

REACTIONS (2)
  - COLITIS COLLAGENOUS [None]
  - COLITIS ULCERATIVE [None]
